FAERS Safety Report 7996663-4 (Version None)
Quarter: 2011Q4

REPORT INFORMATION
  Report Type: 
  Country: None (occurrence: None)
  Receive Date: 20111221
  Receipt Date: 20111208
  Transmission Date: 20120403
  Serious: Yes (Other)
  Sender: FDA-Public Use
  Company Number: US-ELI_LILLY_AND_COMPANY-US201111008063

PATIENT
  Sex: Female

DRUGS (2)
  1. FORTEO [Suspect]
     Indication: OSTEOPOROSIS
     Dosage: 20 UG, QD
     Dates: start: 20091101
  2. FORTEO [Suspect]
     Dosage: 20 UG, QD

REACTIONS (3)
  - ADVERSE EVENT [None]
  - BONE DISORDER [None]
  - OESOPHAGEAL HAEMORRHAGE [None]
